FAERS Safety Report 8323412-2 (Version None)
Quarter: 2012Q2

REPORT INFORMATION
  Report Type: 
  Country: None (occurrence: None)
  Receive Date: 20120430
  Receipt Date: 20120425
  Transmission Date: 20120825
  Serious: Yes (Other)
  Sender: FDA-Public Use
  Company Number: GB-ELI_LILLY_AND_COMPANY-GB201203002734

PATIENT
  Sex: Male
  Weight: 97.959 kg

DRUGS (4)
  1. METFORMIN HCL [Concomitant]
  2. BYDUREON [Suspect]
     Indication: BLOOD GLUCOSE ABNORMAL
     Dosage: 2 MG, WEEKLY (1/W)
     Route: 058
     Dates: start: 20111219, end: 20120223
  3. DRUG USED IN DIABETES [Concomitant]
  4. HUMULIN M3 [Concomitant]
     Dosage: UNK, BID

REACTIONS (5)
  - INJECTION SITE HAEMATOMA [None]
  - BLOOD GLUCOSE INCREASED [None]
  - OFF LABEL USE [None]
  - INJECTION SITE NODULE [None]
  - MALAISE [None]
